FAERS Safety Report 7709160-8 (Version None)
Quarter: 2011Q3

REPORT INFORMATION
  Report Type: 
  Country: None (occurrence: None)
  Receive Date: 20110825
  Receipt Date: 20110817
  Transmission Date: 20111222
  Serious: Yes (Disabling)
  Sender: FDA-Public Use
  Company Number: PHHY2011FI09458

PATIENT
  Sex: Female

DRUGS (3)
  1. DEPRAKINE [Concomitant]
     Indication: EPILEPSY
     Dosage: UNK UKN, UNK
     Dates: start: 19810101, end: 19820101
  2. LAMICTAL [Concomitant]
     Indication: EPILEPSY
     Dosage: UNK UKN, UNK
     Dates: start: 20040101
  3. TRILEPTAL [Suspect]
     Indication: EPILEPSY
     Dosage: 600 MG, BID

REACTIONS (3)
  - SENSORY DISTURBANCE [None]
  - POLYNEUROPATHY [None]
  - MUSCULOSKELETAL STIFFNESS [None]
